FAERS Safety Report 10213540 (Version 1)
Quarter: 2014Q2

REPORT INFORMATION
  Report Type: Spontaneous
  Country: US (occurrence: None)
  Receive Date: 20140529
  Receipt Date: 20140529
  Transmission Date: 20141212
  Serious: Yes (Hospitalization, Other)
  Sender: FDA-Public Use
  Company Number: US-ZYDUS-003494

PATIENT
  Age: 84 Year
  Sex: Female

DRUGS (7)
  1. MELOXICAM (MELOXICAM) [Suspect]
     Indication: BACK PAIN
  2. LEVOTHYROXINE SODIUM (LEVOTHYROXINE SODIUM) [Concomitant]
  3. TELMISARTAN (TELMISARTAN) [Concomitant]
  4. ATORVASTATIN (ATORVASTATIN) [Concomitant]
  5. SALMETEROL/FLUTICASONPROPIONAAT (SALMETEROL/FLUTICASONPROPIONAAT) [Concomitant]
  6. ALBUTEROL (ALBUTEROL) [Concomitant]
  7. MONTELUKAST (MONTELUKAST) [Concomitant]

REACTIONS (1)
  - Immune thrombocytopenic purpura [None]
